FAERS Safety Report 17481670 (Version 1)
Quarter: 2020Q1

REPORT INFORMATION
  Report Type: Spontaneous
  Country: PT (occurrence: PT)
  Receive Date: 20200302
  Receipt Date: 20200302
  Transmission Date: 20200409
  Serious: Yes (Other)
  Sender: FDA-Public Use
  Company Number: PT-TEVA-2020-PT-1192353

PATIENT
  Age: 35 Year
  Sex: Female
  Weight: 52 kg

DRUGS (4)
  1. PACLITAXEL. [Suspect]
     Active Substance: PACLITAXEL
     Indication: BREAST CANCER
     Dosage: 121MG DAYS 1.3 AND 8. RAMALS OCCURRED BETWEEN 5 TO 30 MINUTES AFTER PACLITAXEL ADMINISTRATIONS, 363
     Route: 042
     Dates: start: 20190218
  2. RANITIDINE. [Concomitant]
     Active Substance: RANITIDINE
     Dosage: PREMEDICATION
  3. PREDNISOLONE. [Concomitant]
     Active Substance: PREDNISOLONE
     Dosage: PREMEDICATION, 5 MG
  4. DESLORATADINE. [Concomitant]
     Active Substance: DESLORATADINE
     Dosage: PREMEDICATION, 5 MG

REACTIONS (5)
  - Rash [Unknown]
  - Paraesthesia [Unknown]
  - Dyspnoea [Unknown]
  - Feeling hot [Unknown]
  - Paraesthesia [Unknown]

NARRATIVE: CASE EVENT DATE: 20190218
